FAERS Safety Report 11337785 (Version 1)
Quarter: 2015Q3

REPORT INFORMATION
  Report Type: Spontaneous
  Country: US (occurrence: US)
  Receive Date: 20150803
  Receipt Date: 20150803
  Transmission Date: 20151125
  Serious: No
  Sender: FDA-Public Use
  Company Number: US-ELI_LILLY_AND_COMPANY-US200611001928

PATIENT
  Age: 44 Year
  Sex: Female
  Weight: 92.97 kg

DRUGS (13)
  1. GEODON [Concomitant]
     Active Substance: ZIPRASIDONE HYDROCHLORIDE\ZIPRASIDONE MESYLATE
     Dates: start: 1998
  2. LITHIUM. [Concomitant]
     Active Substance: LITHIUM
     Dates: start: 1996
  3. ZYPREXA [Suspect]
     Active Substance: OLANZAPINE
     Dosage: 7.5 MG, EACH EVENING
     Dates: start: 20000227, end: 20000327
  4. DEPAKOTE [Concomitant]
     Active Substance: DIVALPROEX SODIUM
     Dates: start: 1996
  5. ZYPREXA [Suspect]
     Active Substance: OLANZAPINE
     Indication: PSYCHOTIC DISORDER
     Dosage: 10 MG, EACH EVENING
     Dates: start: 20000204, end: 20000227
  6. ZYPREXA [Suspect]
     Active Substance: OLANZAPINE
     Dosage: 10 MG, EACH EVENING
     Dates: start: 20000923, end: 20001023
  7. RISPERDAL [Concomitant]
     Active Substance: RISPERIDONE
     Dosage: 0.5 MG, EACH EVENING
     Dates: start: 20010301, end: 20010721
  8. XANAX [Concomitant]
     Active Substance: ALPRAZOLAM
     Dates: start: 1996
  9. ZYPREXA [Suspect]
     Active Substance: OLANZAPINE
     Dosage: 7.5 MG, EACH EVENING
     Dates: start: 20000512, end: 20000612
  10. RISPERDAL [Concomitant]
     Active Substance: RISPERIDONE
     Dosage: 1 D/F, UNK
     Dates: start: 19960308
  11. RISPERDAL [Concomitant]
     Active Substance: RISPERIDONE
     Dosage: 4 MG, 2/D
     Dates: start: 20021206, end: 20030207
  12. RISPERDAL [Concomitant]
     Active Substance: RISPERIDONE
     Dosage: 3 MG, 2/D
     Dates: start: 20030305, end: 20041231
  13. RISPERDAL [Concomitant]
     Active Substance: RISPERIDONE
     Dosage: 0.3 MG, 2/D
     Dates: start: 20011009, end: 20020128

REACTIONS (4)
  - Diabetes mellitus [Unknown]
  - Blood triglycerides increased [Unknown]
  - Off label use [Recovered/Resolved]
  - Blood cholesterol increased [Unknown]

NARRATIVE: CASE EVENT DATE: 20041010
